FAERS Safety Report 7368933-4 (Version None)
Quarter: 2011Q1

REPORT INFORMATION
  Report Type: 
  Country: None (occurrence: None)
  Receive Date: 20110323
  Receipt Date: 20110309
  Transmission Date: 20110831
  Serious: Yes (Hospitalization, Disabling)
  Sender: FDA-Public Use
  Company Number: DE-CELGENEUS-062-50794-11031170

PATIENT
  Age: 71 Year
  Sex: Female
  Weight: 70 kg

DRUGS (12)
  1. VIDAZA [Suspect]
     Dosage: 135 MILLIGRAM
     Route: 051
     Dates: start: 20110111, end: 20110115
  2. TAZOBAC [Concomitant]
     Indication: PNEUMONIA
     Dosage: 4.5 GRAM
     Route: 051
     Dates: start: 20110118, end: 20110128
  3. MERONEM [Concomitant]
     Indication: PNEUMONIA
     Dosage: 3 GRAM
     Route: 051
     Dates: start: 20110129, end: 20110207
  4. MERONEM [Concomitant]
     Dosage: 108
     Route: 051
     Dates: start: 20110211, end: 20110213
  5. TAZOBAC [Concomitant]
     Dosage: 108
     Route: 051
     Dates: start: 20110211, end: 20110213
  6. CYTARABINE [Concomitant]
     Dosage: 180 MILLIGRAM
     Route: 051
     Dates: start: 20110116, end: 20110122
  7. VIDAZA [Suspect]
     Dosage: 135 MILLIGRAM
     Route: 051
     Dates: start: 20110204, end: 20110208
  8. CYTARABINE [Concomitant]
     Dosage: 180 MILLIGRAM
     Route: 051
     Dates: start: 20110209, end: 20110215
  9. DAUNORUBICIN [Concomitant]
     Dosage: 108 MILLIGRAM
     Route: 051
     Dates: start: 20110118, end: 20110120
  10. DAUNORUBICIN [Concomitant]
     Dosage: 108 MILLIGRAM
     Route: 051
     Dates: start: 20110211, end: 20110213
  11. VANCOMYCIN [Concomitant]
     Indication: PNEUMONIA
     Dosage: 2
     Route: 051
     Dates: start: 20110122, end: 20110207
  12. VANCOMYCIN [Concomitant]
     Dosage: 108
     Route: 051
     Dates: start: 20110211, end: 20110213

REACTIONS (2)
  - RIGHT VENTRICULAR DYSFUNCTION [None]
  - LEFT VENTRICULAR DYSFUNCTION [None]
